FAERS Safety Report 4707117-2 (Version None)
Quarter: 2005Q3

REPORT INFORMATION
  Report Type: 
  Country: None (occurrence: None)
  Receive Date: 20050706
  Receipt Date: 20050704
  Transmission Date: 20060218
  Serious: Yes (Other)
  Sender: FDA-Public Use
  Company Number: PHNR2005AU01059

PATIENT
  Age: 9 Year
  Sex: Female

DRUGS (2)
  1. OMEPRAZOLE [Suspect]
     Indication: OESOPHAGEAL DISORDER
     Dosage: 20 MG/DAY
  2. RITALIN LA [Suspect]
     Indication: ABNORMAL BEHAVIOUR
     Route: 048
     Dates: start: 20050115

REACTIONS (3)
  - ABDOMINAL PAIN UPPER [None]
  - ANOREXIA [None]
  - CHOREOATHETOSIS [None]
